FAERS Safety Report 8619539 (Version 7)
Quarter: 2012Q4

REPORT INFORMATION
  Report Type: 
  Country: ES (occurrence: ES)
  Receive Date: 20120618
  Receipt Date: 20121011
  Transmission Date: 20130627
  Serious: Yes (Other)
  Sender: FDA-Public Use
  Company Number: PHHY2012ES051098

PATIENT
  Age: 29 Year
  Sex: Male

DRUGS (2)
  1. GILENYA [Suspect]
     Indication: MULTIPLE SCLEROSIS
     Dosage: UNK UKN, UNK
     Route: 048
     Dates: start: 20120606, end: 20120610
  2. GILENYA [Suspect]
     Dosage: UNK UKN, UNK
     Route: 048

REACTIONS (14)
  - Immune reconstitution inflammatory syndrome [Recovering/Resolving]
  - Cognitive disorder [Recovering/Resolving]
  - Confusional state [Not Recovered/Not Resolved]
  - Dementia [Not Recovered/Not Resolved]
  - Hemiparesis [Unknown]
  - Electroencephalogram abnormal [Unknown]
  - Dysarthria [Unknown]
  - Aphasia [Unknown]
  - Personality change [Unknown]
  - Nuclear magnetic resonance imaging abnormal [Unknown]
  - Computerised tomogram abnormal [Unknown]
  - Gait disturbance [Unknown]
  - Nervous system disorder [Unknown]
  - Central nervous system lesion [Unknown]
